FAERS Safety Report 13982036 (Version 2)
Quarter: 2017Q4

REPORT INFORMATION
  Report Type: Spontaneous
  Country: US (occurrence: US)
  Receive Date: 20170918
  Receipt Date: 20171019
  Transmission Date: 20180321
  Serious: Yes (Hospitalization, Other)
  Sender: FDA-Public Use
  Company Number: US-TESARO INC.-TS50-00398-2017USA

PATIENT
  Age: 76 Year
  Sex: Female

DRUGS (4)
  1. FOLIC ACID. [Concomitant]
     Active Substance: FOLIC ACID
  2. ROLAPITANT HYDROCHLORIDE [Suspect]
     Active Substance: ROLAPITANT
     Indication: NAUSEA
     Dosage: 180 MG EVERY 3 WEEKS
     Route: 048
     Dates: start: 20170724
  3. ROLAPITANT HYDROCHLORIDE [Suspect]
     Active Substance: ROLAPITANT
     Indication: VOMITING
  4. CYANOCOBALAMIN. [Concomitant]
     Active Substance: CYANOCOBALAMIN

REACTIONS (17)
  - Cellulitis [Unknown]
  - Thyroid function test abnormal [Unknown]
  - Blue toe syndrome [Unknown]
  - Macule [Unknown]
  - Paraesthesia [Unknown]
  - Lacrimation increased [Unknown]
  - Hypertension [Unknown]
  - Neuropathy peripheral [Unknown]
  - Insomnia [Unknown]
  - Balance disorder [Unknown]
  - Vitamin D deficiency [Unknown]
  - Rhinitis allergic [Unknown]
  - Second primary malignancy [Unknown]
  - Hypoaesthesia [Unknown]
  - Dyspnoea [Unknown]
  - Blood potassium decreased [Recovered/Resolved]
  - Musculoskeletal discomfort [Unknown]

NARRATIVE: CASE EVENT DATE: 20170724
